FAERS Safety Report 11607515 (Version 2)
Quarter: 2015Q4

REPORT INFORMATION
  Report Type: Spontaneous
  Country: FI (occurrence: FI)
  Receive Date: 20151007
  Receipt Date: 20151028
  Transmission Date: 20160304
  Serious: Yes (Death, Other)
  Sender: FDA-Public Use
  Company Number: FI-BAXTER-2015BAX052750

PATIENT
  Sex: Male

DRUGS (17)
  1. PREDNISONE. [Suspect]
     Active Substance: PREDNISONE
     Indication: B-CELL LYMPHOMA
     Route: 065
  2. VINORELBINE [Suspect]
     Active Substance: VINORELBINE\VINORELBINE TARTRATE
     Route: 042
     Dates: start: 20090330
  3. CYCLOPHOSPHAMIDE FOR INJECTION, USP [Suspect]
     Active Substance: CYCLOPHOSPHAMIDE
     Indication: B-CELL LYMPHOMA
     Route: 065
  4. HOLOXAN INJEKTIO/INFUUSIOKUIVA-AINE, LIUOSTA VARTEN [Suspect]
     Active Substance: IFOSFAMIDE
     Indication: B-CELL LYMPHOMA
     Route: 042
     Dates: start: 20090302
  5. VINCRISTINE [Suspect]
     Active Substance: VINCRISTINE
     Indication: B-CELL LYMPHOMA
     Route: 065
  6. PREDNISONE. [Suspect]
     Active Substance: PREDNISONE
     Indication: RECURRENT CANCER
     Route: 065
  7. RITUXIMAB [Suspect]
     Active Substance: RITUXIMAB
     Indication: RECURRENT CANCER
     Route: 065
  8. DOXORUBICIN [Suspect]
     Active Substance: DOXORUBICIN
     Indication: B-CELL LYMPHOMA
     Route: 065
  9. HOLOXAN INJEKTIO/INFUUSIOKUIVA-AINE, LIUOSTA VARTEN [Suspect]
     Active Substance: IFOSFAMIDE
     Route: 042
     Dates: start: 20090330
  10. HOLOXAN INJEKTIO/INFUUSIOKUIVA-AINE, LIUOSTA VARTEN [Suspect]
     Active Substance: IFOSFAMIDE
     Route: 042
     Dates: start: 20090525, end: 20090525
  11. VINCRISTINE [Suspect]
     Active Substance: VINCRISTINE
     Indication: RECURRENT CANCER
     Route: 065
  12. RITUXIMAB [Suspect]
     Active Substance: RITUXIMAB
     Indication: RECURRENT CANCER
     Route: 065
  13. VINORELBINE [Suspect]
     Active Substance: VINORELBINE\VINORELBINE TARTRATE
     Indication: B-CELL LYMPHOMA
     Route: 042
     Dates: start: 20090302
  14. BENDAMUSTINE [Suspect]
     Active Substance: BENDAMUSTINE
     Indication: RECURRENT CANCER
  15. CYCLOPHOSPHAMIDE FOR INJECTION, USP [Suspect]
     Active Substance: CYCLOPHOSPHAMIDE
     Indication: RECURRENT CANCER
     Route: 065
  16. VINORELBINE [Suspect]
     Active Substance: VINORELBINE\VINORELBINE TARTRATE
     Route: 042
     Dates: start: 20090525, end: 20090525
  17. RITUXIMAB [Suspect]
     Active Substance: RITUXIMAB
     Indication: B-CELL LYMPHOMA
     Route: 065

REACTIONS (10)
  - Pain in extremity [Unknown]
  - Drug ineffective [Not Recovered/Not Resolved]
  - Rash [Unknown]
  - Leukopenia [Recovered/Resolved]
  - Lymphoma transformation [Fatal]
  - Metastases to skin [Unknown]
  - Pseudomonal sepsis [Recovered/Resolved]
  - Malignant neoplasm progression [Unknown]
  - Pathological fracture [Unknown]
  - Recurrent cancer [Not Recovered/Not Resolved]

NARRATIVE: CASE EVENT DATE: 2008
